FAERS Safety Report 5871851-1 (Version None)
Quarter: 2008Q3

REPORT INFORMATION
  Report Type: 
  Country: None (occurrence: None)
  Receive Date: 20080904
  Receipt Date: 20080904
  Transmission Date: 20090109
  Serious: Yes (Other)
  Sender: FDA-Public Use
  Company Number: None

PATIENT
  Age: 50 Year
  Sex: Female
  Weight: 54.4316 kg

DRUGS (2)
  1. SIMVASTATIN [Suspect]
     Indication: BLOOD CHOLESTEROL INCREASED
     Dosage: 20MG 1 PER DAY PO
     Route: 048
     Dates: start: 20071121, end: 20080426
  2. SIMVASTATIN [Suspect]

REACTIONS (3)
  - HYPERREFLEXIA [None]
  - MYOPATHY [None]
  - SPINAL OSTEOARTHRITIS [None]
